FAERS Safety Report 7917170-0 (Version None)
Quarter: 2011Q4

REPORT INFORMATION
  Report Type: 
  Country: None (occurrence: None)
  Receive Date: 20111116
  Receipt Date: 20090909
  Transmission Date: 20120403
  Serious: No
  Sender: FDA-Public Use
  Company Number: US-ENDO PHARMACEUTICALS INC.-PHEB20110018

PATIENT
  Sex: Male

DRUGS (2)
  1. PHENYTOIN [Suspect]
     Indication: CONVULSION
     Route: 048
  2. PHENOBARBITAL TAB [Suspect]
     Indication: CONVULSION
     Route: 048
     Dates: start: 20050601

REACTIONS (4)
  - NEUROPATHY PERIPHERAL [None]
  - ATELECTASIS [None]
  - ACCIDENTAL OVERDOSE [None]
  - CONSTIPATION [None]
